FAERS Safety Report 18873454 (Version 2)
Quarter: 2021Q1

REPORT INFORMATION
  Report Type: Spontaneous
  Country: NO (occurrence: NO)
  Receive Date: 20210210
  Receipt Date: 20210327
  Transmission Date: 20210420
  Serious: Yes (Hospitalization, Other)
  Sender: FDA-Public Use
  Company Number: NVSC2021NO023811

PATIENT
  Age: 55 Year
  Sex: Male
  Weight: 98.4 kg

DRUGS (2)
  1. TAFINLAR [Suspect]
     Active Substance: DABRAFENIB MESYLATE
     Indication: MALIGNANT MELANOMA
     Dosage: 300 MG, QD
     Route: 048
     Dates: start: 20201208, end: 20201221
  2. MEKINIST [Suspect]
     Active Substance: TRAMETINIB DIMETHYL SULFOXIDE
     Indication: METASTATIC MALIGNANT MELANOMA
     Dosage: 2 MG, QD
     Route: 048
     Dates: start: 20201208, end: 20201221

REACTIONS (8)
  - C-reactive protein increased [Unknown]
  - White blood cell count decreased [Unknown]
  - Serum ferritin increased [Unknown]
  - Pyrexia [Recovering/Resolving]
  - Haemoglobin decreased [Unknown]
  - Pneumonia [Recovered/Resolved]
  - Blood creatinine increased [Unknown]
  - Platelet count decreased [Unknown]

NARRATIVE: CASE EVENT DATE: 20201221
